FAERS Safety Report 6275580-4 (Version None)
Quarter: 2009Q3

REPORT INFORMATION
  Report Type: 
  Country: None (occurrence: None)
  Receive Date: 20090721
  Receipt Date: 20090714
  Transmission Date: 20100115
  Serious: Yes (Disabling)
  Sender: FDA-Public Use
  Company Number: US-CUBIST-2009S1000270

PATIENT
  Sex: Male

DRUGS (4)
  1. CUBICIN [Suspect]
     Indication: WOUND INFECTION STAPHYLOCOCCAL
     Route: 042
  2. COMTAN [Concomitant]
     Indication: PARKINSON'S DISEASE
  3. SINEMET [Concomitant]
     Indication: PARKINSON'S DISEASE
  4. MIRAPEX [Concomitant]
     Indication: PARKINSON'S DISEASE

REACTIONS (1)
  - PARKINSON'S DISEASE [None]
